FAERS Safety Report 10354636 (Version 2)
Quarter: 2014Q3

REPORT INFORMATION
  Report Type: Spontaneous
  Country: US (occurrence: US)
  Receive Date: 20140731
  Receipt Date: 20140731
  Transmission Date: 20150326
  Serious: Yes (Other)
  Sender: FDA-Public Use
  Company Number: US-009507513-2010SP065553

PATIENT
  Sex: Female
  Weight: 58.97 kg

DRUGS (2)
  1. NUVARING [Suspect]
     Active Substance: ETHINYL ESTRADIOL\ETONOGESTREL
     Dosage: UNK
     Route: 067
     Dates: start: 20060831, end: 20090112
  2. NUVARING [Suspect]
     Active Substance: ETHINYL ESTRADIOL\ETONOGESTREL
     Indication: CONTRACEPTION
     Dosage: UNK
     Route: 067
     Dates: start: 200408

REACTIONS (13)
  - Amenorrhoea [Unknown]
  - Blood disorder [Unknown]
  - Tonsillectomy [Unknown]
  - Bursitis [Not Recovered/Not Resolved]
  - Anogenital warts [Not Recovered/Not Resolved]
  - Papilloma viral infection [Not Recovered/Not Resolved]
  - Factor V Leiden mutation [Not Recovered/Not Resolved]
  - Deep vein thrombosis [Recovered/Resolved]
  - Plantar fasciitis [Not Recovered/Not Resolved]
  - Cervical dysplasia [Unknown]
  - Weight increased [Unknown]
  - Chlamydial infection [Unknown]
  - Migraine [Unknown]

NARRATIVE: CASE EVENT DATE: 2004
